FAERS Safety Report 6884951-4 (Version None)
Quarter: 2010Q3

REPORT INFORMATION
  Report Type: 
  Country: None (occurrence: None)
  Receive Date: 20100729
  Receipt Date: 20080110
  Transmission Date: 20110219
  Serious: Yes (Other)
  Sender: FDA-Public Use
  Company Number: US-PFIZER INC-2007071830

PATIENT
  Sex: Male
  Weight: 86.2 kg

DRUGS (2)
  1. CELEBREX [Suspect]
     Indication: RADIUS FRACTURE
     Route: 048
     Dates: start: 20020101, end: 20040501
  2. BEXTRA [Suspect]
     Indication: RADIUS FRACTURE
     Route: 048
     Dates: start: 20020401

REACTIONS (1)
  - MYOCARDIAL INFARCTION [None]
